FAERS Safety Report 6749498-4 (Version None)
Quarter: 2010Q2

REPORT INFORMATION
  Report Type: 
  Country: None (occurrence: None)
  Receive Date: 20100527
  Receipt Date: 20100527
  Transmission Date: 20101027
  Serious: No
  Sender: FDA-Public Use
  Company Number: None

PATIENT
  Age: 85 Year
  Sex: Male
  Weight: 84.369 kg

DRUGS (2)
  1. DIOVAN [Suspect]
     Dosage: 160 MG 1 X A DAY BY MOUTH
     Route: 048
     Dates: start: 20100429
  2. BENICAR [Suspect]
     Dosage: 20 MG 1 X A DAY BY MOUTH
     Route: 048
     Dates: start: 20100512

REACTIONS (6)
  - BONE PAIN [None]
  - CHILLS [None]
  - DIZZINESS [None]
  - FATIGUE [None]
  - PYREXIA [None]
  - VISION BLURRED [None]
